FAERS Safety Report 10058465 (Version 1)
Quarter: 2014Q2

REPORT INFORMATION
  Report Type: Spontaneous
  Country: ES (occurrence: ES)
  Receive Date: 20140404
  Receipt Date: 20140404
  Transmission Date: 20141212
  Serious: Yes (Life-Threatening, Hospitalization)
  Sender: FDA-Public Use
  Company Number: ES-SA-2014SA037469

PATIENT
  Age: 84 Year
  Sex: Male

DRUGS (11)
  1. CLEXANE [Suspect]
     Indication: THROMBOSIS PROPHYLAXIS
     Dosage: 40MG
     Route: 058
     Dates: start: 20130412, end: 20130511
  2. ACETYLSALICYLIC ACID [Interacting]
     Indication: PERIPHERAL ARTERIAL OCCLUSIVE DISEASE
     Dosage: 1CP
     Route: 048
     Dates: start: 20130409, end: 20130511
  3. SINTROM [Interacting]
     Indication: RENAL ARTERY STENOSIS
     Dosage: STRENGTH: 4 MG
     Route: 048
     Dates: start: 20130508, end: 20130511
  4. ATORVASTATIN [Concomitant]
     Indication: DYSLIPIDAEMIA
     Dosage: 0-0-1
     Route: 048
     Dates: start: 2011
  5. CARVEDILOL [Concomitant]
     Indication: CARDIAC FAILURE CONGESTIVE
     Dosage: 1CP CENA
     Route: 048
     Dates: start: 2012
  6. HALOPERIDOL [Concomitant]
     Indication: AGITATION
     Dosage: 17 GOTAS CENA
     Route: 048
     Dates: start: 20130509, end: 20130511
  7. INSULIN LISPRO [Concomitant]
     Indication: TYPE 2 DIABETES MELLITUS
     Dosage: 3-3-3
     Route: 058
     Dates: start: 20130507, end: 20130512
  8. LEVOTIROXINA [Concomitant]
     Indication: HYPOTHYROIDISM
     Dosage: 25MCG
     Route: 048
     Dates: start: 1993
  9. MEROPENEM [Concomitant]
     Indication: RESPIRATORY TRACT INFECTION
     Dosage: 2GR DIA
     Route: 042
     Dates: start: 20130506, end: 20130512
  10. METAMIZOLE [Concomitant]
     Indication: PAIN
     Dosage: 2GR/8H
     Route: 042
     Dates: start: 20130505
  11. PANTOPRAZOLE [Concomitant]
     Indication: PROPHYLAXIS
     Dosage: 1CP
     Route: 048
     Dates: start: 20130320

REACTIONS (4)
  - Hypovolaemic shock [Recovered/Resolved]
  - Drug interaction [Unknown]
  - Renal haematoma [Not Recovered/Not Resolved]
  - Retroperitoneal haematoma [Not Recovered/Not Resolved]
